FAERS Safety Report 6801711-0 (Version None)
Quarter: 2010Q2

REPORT INFORMATION
  Report Type: 
  Country: None (occurrence: None)
  Receive Date: 20100629
  Receipt Date: 20100621
  Transmission Date: 20101027
  Serious: Yes (Hospitalization)
  Sender: FDA-Public Use
  Company Number: IT-ABBOTT-10P-083-0649445-00

PATIENT
  Sex: Female

DRUGS (2)
  1. CLARITHROMYCIN [Suspect]
     Indication: TONSILLITIS
     Route: 048
     Dates: start: 20100506, end: 20100514
  2. AUGMENTIN '125' [Suspect]
     Indication: TONSILLITIS
     Route: 048
     Dates: start: 20100515, end: 20100521

REACTIONS (2)
  - PRURITUS [None]
  - RASH PAPULAR [None]
